FAERS Safety Report 11367876 (Version 2)
Quarter: 2015Q3

REPORT INFORMATION
  Report Type: Spontaneous
  Country: US (occurrence: None)
  Receive Date: 20150810
  Receipt Date: 20150814
  Transmission Date: 20151125
  Serious: Yes (Other)
  Sender: FDA-Public Use
  Company Number: ADR-2015-01495

PATIENT
  Age: 23 Year
  Sex: Female

DRUGS (1)
  1. LIORESAL [Suspect]
     Active Substance: BACLOFEN
     Indication: MUSCLE SPASTICITY

REACTIONS (8)
  - Weight increased [None]
  - Movement disorder [None]
  - Asthenia [None]
  - Performance status decreased [None]
  - Condition aggravated [None]
  - Agitation [None]
  - No therapeutic response [None]
  - Pain [None]

NARRATIVE: CASE EVENT DATE: 20080422
